FAERS Safety Report 8486205-1 (Version None)
Quarter: 2012Q3

REPORT INFORMATION
  Report Type: 
  Country: None (occurrence: None)
  Receive Date: 20120703
  Receipt Date: 20120621
  Transmission Date: 20120928
  Serious: Yes (Hospitalization, Disabling, Other)
  Sender: FDA-Public Use
  Company Number: US-ELI_LILLY_AND_COMPANY-US201204009717

PATIENT
  Sex: Male

DRUGS (17)
  1. HUMALOG [Suspect]
     Dosage: UNK, PRN AT LUNCHTIME
     Dates: start: 20110701
  2. LOTREL [Concomitant]
     Dosage: UNK, QD
  3. PLAVIX [Concomitant]
     Dosage: 75 MG, QD
  4. HUMALOG [Suspect]
     Dosage: 2 U, WITH DINNER
     Dates: start: 20110701
  5. BYSTOLIC [Concomitant]
     Dosage: 5 MG, QD
  6. COQ-10 [Concomitant]
     Dosage: UNK
  7. LEVEMIR [Concomitant]
     Dosage: 4 U, BID
  8. LIPITOR [Concomitant]
     Dosage: 40 MG, QD
  9. FLOMAX [Concomitant]
     Dosage: 0.4 MG, QD
  10. MICARDIS [Concomitant]
     Dosage: 40 MG, QD
  11. VITAMIN D [Concomitant]
     Dosage: UNK
  12. HUMAN INSULIN [Suspect]
     Dosage: 2 U, WITH DINNER
     Route: 058
     Dates: start: 19570101, end: 20110701
  13. HUMALOG [Suspect]
     Indication: TYPE 1 DIABETES MELLITUS
     Dosage: 13 U, EACH MORNING
     Dates: start: 20110701
  14. ASPIRIN [Concomitant]
     Dosage: 81 MG, QD
  15. HUMAN INSULIN [Suspect]
     Indication: TYPE 1 DIABETES MELLITUS
     Dosage: 10 U, EACH MORNING
     Route: 058
     Dates: start: 19570101, end: 20110701
  16. SYNTHROID [Concomitant]
     Dosage: 88 MG, QD
  17. LOVAZA [Concomitant]
     Dosage: UNK

REACTIONS (9)
  - MYOCARDIAL INFARCTION [None]
  - FALL [None]
  - VASCULAR GRAFT [None]
  - RENAL FAILURE CHRONIC [None]
  - LEG AMPUTATION [None]
  - VASCULAR GRAFT OCCLUSION [None]
  - BALANCE DISORDER [None]
  - MUSCLE DISORDER [None]
  - BLOOD GLUCOSE FLUCTUATION [None]
